FAERS Safety Report 16040919 (Version 2)
Quarter: 2020Q1

REPORT INFORMATION
  Report Type: Spontaneous
  Country: US (occurrence: US)
  Receive Date: 20190306
  Receipt Date: 20200303
  Transmission Date: 20200409
  Serious: No
  Sender: FDA-Public Use
  Company Number: US-AKORN PHARMACEUTICALS-2019AKN00090

PATIENT
  Age: 44 Year
  Sex: Male
  Weight: 72.56 kg

DRUGS (6)
  1. ASPIRIN. [Concomitant]
     Active Substance: ASPIRIN
     Dosage: 80 MG
  2. RANITIDINE. [Concomitant]
     Active Substance: RANITIDINE
  3. MYORISAN [Suspect]
     Active Substance: ISOTRETINOIN
     Indication: ACNE CYSTIC
     Dosage: 40 MG
     Dates: start: 20180913, end: 201810
  4. MYORISAN [Suspect]
     Active Substance: ISOTRETINOIN
     Indication: FOLLICULITIS
  5. PREVACID [Concomitant]
     Active Substance: LANSOPRAZOLE
  6. MYORISAN [Suspect]
     Active Substance: ISOTRETINOIN
     Indication: SCAR
     Dosage: 60 MG
     Dates: start: 201810, end: 201811

REACTIONS (5)
  - Headache [Recovered/Resolved]
  - Vision blurred [Recovered/Resolved]
  - Eye infection [Recovered/Resolved]
  - Product use in unapproved indication [Recovered/Resolved]
  - Visual impairment [Recovered/Resolved]

NARRATIVE: CASE EVENT DATE: 2018
